FAERS Safety Report 13782521 (Version 2)
Quarter: 2017Q4

REPORT INFORMATION
  Report Type: Report from Study
  Country: None (occurrence: US)
  Receive Date: 20170724
  Receipt Date: 20171023
  Transmission Date: 20180320
  Serious: Yes (Hospitalization, Other)
  Sender: FDA-Public Use
  Company Number: US-ABBVIE-17K-163-2046744-00

PATIENT
  Age: 61 Year
  Sex: Male
  Weight: 122.58 kg

DRUGS (1)
  1. HUMIRA [Suspect]
     Active Substance: ADALIMUMAB
     Indication: PSORIASIS
     Route: 058
     Dates: start: 2015

REACTIONS (4)
  - Pulmonary embolism [Recovered/Resolved]
  - Fall [Recovered/Resolved]
  - Rib fracture [Recovered/Resolved]
  - Hypertension [Unknown]

NARRATIVE: CASE EVENT DATE: 201611
